FAERS Safety Report 4673759-6 (Version None)
Quarter: 2005Q2

REPORT INFORMATION
  Report Type: 
  Country: None (occurrence: None)
  Receive Date: 20050524
  Receipt Date: 20050421
  Transmission Date: 20051028
  Serious: Yes (Death)
  Sender: FDA-Public Use
  Company Number: 10940

PATIENT

DRUGS (9)
  1. MITOXANTRONE [Suspect]
     Indication: NON-HODGKIN'S LYMPHOMA
     Dosage: 8 MG/M2 OTH
     Route: 042
  2. DOXORUBICIN [Suspect]
     Indication: NON-HODGKIN'S LYMPHOMA
  3. VINCRISTINE [Suspect]
     Indication: NON-HODGKIN'S LYMPHOMA
  4. ETOPOSIDE [Suspect]
     Indication: NON-HODGKIN'S LYMPHOMA
  5. LEUKERAN [Suspect]
     Indication: NON-HODGKIN'S LYMPHOMA
     Dosage: 3 MG/M2 OTH
     Route: 048
  6. PREDNISONE TAB [Suspect]
     Indication: NON-HODGKIN'S LYMPHOMA
     Dosage: 25 MG OTH
     Route: 048
  7. PREDNISOLONE [Suspect]
     Indication: NON-HODGKIN'S LYMPHOMA
  8. CYCLOPHOSPHAMIDE [Suspect]
     Indication: NON-HODGKIN'S LYMPHOMA
  9. IFOSFAMIDE [Suspect]
     Indication: NON-HODGKIN'S LYMPHOMA

REACTIONS (3)
  - ACUTE MYELOID LEUKAEMIA [None]
  - MYELODYSPLASTIC SYNDROME [None]
  - PNEUMONIA [None]
